FAERS Safety Report 4404554-0 (Version None)
Quarter: 2004Q3

REPORT INFORMATION
  Report Type: 
  Country: None (occurrence: None)
  Receive Date: 20040721
  Receipt Date: 20040721
  Transmission Date: 20050211
  Serious: Yes (Hospitalization)
  Sender: FDA-Public Use
  Company Number: None

PATIENT
  Age: 2 Year
  Sex: Female
  Weight: 15.1 kg

DRUGS (3)
  1. UPJOHN (250MG AMPULE) (50MG/ML) ANTITHYMOCYTE GLOBULIN [Suspect]
     Indication: TRANSPLANT
     Dosage: 450 MG IV
     Dates: start: 20040719
  2. SOLU-MEDROL [Concomitant]
  3. BENADRYL [Concomitant]

REACTIONS (2)
  - ANAPHYLACTIC REACTION [None]
  - HYPOTENSION [None]
